FAERS Safety Report 7265895-5 (Version None)
Quarter: 2011Q1

REPORT INFORMATION
  Report Type: 
  Country: None (occurrence: None)
  Receive Date: 20110131
  Receipt Date: 20110120
  Transmission Date: 20110831
  Serious: Yes (Death, Hospitalization)
  Sender: FDA-Public Use
  Company Number: B0694995A

PATIENT
  Sex: Female

DRUGS (7)
  1. CORDARONE [Concomitant]
     Route: 065
  2. LEVOTHYROX [Concomitant]
     Route: 065
  3. PROZAC [Concomitant]
     Dosage: 20MG PER DAY
     Route: 065
     Dates: start: 20101116
  4. EUPHYLLINE [Concomitant]
     Route: 065
  5. ARIXTRA [Suspect]
     Dosage: 7.5MG PER DAY
     Route: 058
     Dates: start: 20101109, end: 20101123
  6. DILTIAZEM HCL [Concomitant]
     Route: 065
  7. EUPRESSYL [Concomitant]
     Route: 065

REACTIONS (7)
  - SUBDURAL HAEMATOMA [None]
  - DISTURBANCE IN ATTENTION [None]
  - OFF LABEL USE [None]
  - PULMONARY FUNCTION TEST DECREASED [None]
  - COMA [None]
  - SEPTIC SHOCK [None]
  - MULTI-ORGAN FAILURE [None]
